FAERS Safety Report 6458256-X (Version None)
Quarter: 2009Q4

REPORT INFORMATION
  Report Type: 
  Country: None (occurrence: None)
  Receive Date: 20091125
  Receipt Date: 20091117
  Transmission Date: 20100525
  Serious: Yes (Other)
  Sender: FDA-Public Use
  Company Number: ES-AMGEN-QUU371732

PATIENT
  Sex: Male

DRUGS (6)
  1. NEUPOGEN [Suspect]
     Indication: DRUG USE FOR UNKNOWN INDICATION
     Route: 058
     Dates: start: 20091001, end: 20091001
  2. TROMALYT [Concomitant]
     Route: 048
     Dates: start: 20081201
  3. SEPTRIN FORTE [Concomitant]
     Route: 048
     Dates: start: 20090301
  4. ACYCLOVIR [Concomitant]
     Route: 048
     Dates: start: 20090301
  5. OMEPRAZOLE [Concomitant]
     Route: 048
     Dates: start: 20090301
  6. NEULASTA [Concomitant]
     Indication: CHEMOTHERAPY
     Route: 065

REACTIONS (7)
  - EYE SWELLING [None]
  - HYPERSENSITIVITY [None]
  - PERIORBITAL OEDEMA [None]
  - RASH [None]
  - SKIN LESION [None]
  - SKIN TOXICITY [None]
  - URTICARIA [None]
